FAERS Safety Report 7827343-3 (Version None)
Quarter: 2011Q4

REPORT INFORMATION
  Report Type: 
  Country: None (occurrence: None)
  Receive Date: 20111020
  Receipt Date: 20111017
  Transmission Date: 20120403
  Serious: Yes (Life-Threatening, Hospitalization, Other)
  Sender: FDA-Public Use
  Company Number: JP-PFIZER INC-2011216077

PATIENT
  Age: 81 Year
  Sex: Female
  Weight: 46 kg

DRUGS (14)
  1. TRICHLORMETHIAZIDE [Concomitant]
     Dosage: 1 MG, 1X/DAY
     Route: 048
     Dates: start: 20091202
  2. ARICEPT [Concomitant]
     Dosage: 5 MG, 1X/DAY
     Route: 048
     Dates: start: 20100402
  3. SELBEX [Concomitant]
     Dosage: 100 MG, 2X/DAY
     Route: 048
     Dates: start: 20080423
  4. CALBLOCK [Concomitant]
     Dosage: 32 MG, 2X/DAY
     Route: 048
     Dates: start: 20050115
  5. OPALMON [Concomitant]
     Dosage: 15 UG, 3X/DAY
     Route: 048
     Dates: start: 20090128
  6. CELECOXIB [Concomitant]
     Dosage: 200 MG, 2X/DAY
     Route: 048
     Dates: start: 20080423
  7. LYRICA [Suspect]
     Dosage: 75 MG, 1X/DAY
     Route: 048
     Dates: start: 20110831, end: 20110911
  8. SILECE [Concomitant]
     Dosage: 1 MG, 1X/DAY
     Route: 048
     Dates: start: 20110406
  9. LIPITOR [Concomitant]
     Dosage: 10 MG, 1X/DAY
     Route: 048
     Dates: start: 20001129
  10. MICARDIS [Concomitant]
     Dosage: 40 MG, 1X/DAY
     Route: 048
     Dates: start: 20050129
  11. ONE-ALPHA [Concomitant]
     Dosage: 0.5 MG, 1X/DAY
     Route: 048
     Dates: start: 20010718
  12. ASPIRIN [Concomitant]
     Dosage: 100 MG, 1X/DAY
     Route: 048
     Dates: start: 20070922
  13. RISEDRONATE SODIUM [Concomitant]
     Dosage: 2.5 MG, 1X/DAY
     Route: 048
     Dates: start: 20070529
  14. ZOLPIDEM [Concomitant]
     Dosage: 10 MG, 1X/DAY
     Route: 048
     Dates: start: 20070416

REACTIONS (3)
  - DYSPNOEA [None]
  - HYPOTENSION [None]
  - PNEUMONIA [None]
